FAERS Safety Report 6248187-2 (Version None)
Quarter: 2009Q2

REPORT INFORMATION
  Report Type: 
  Country: None (occurrence: None)
  Receive Date: 20090629
  Receipt Date: 20090529
  Transmission Date: 20091009
  Serious: No
  Sender: FDA-Public Use
  Company Number: US-BAYER-200922141NA

PATIENT
  Sex: Female

DRUGS (2)
  1. AVELOX [Suspect]
     Indication: URINARY TRACT INFECTION
     Dates: start: 20090528
  2. AVELOX [Suspect]
     Dates: start: 20090529

REACTIONS (7)
  - ARTHRALGIA [None]
  - BLADDER PAIN [None]
  - MUSCLE TWITCHING [None]
  - MUSCULAR WEAKNESS [None]
  - NAUSEA [None]
  - PARAESTHESIA [None]
  - SLUGGISHNESS [None]
